FAERS Safety Report 13582660 (Version 4)
Quarter: 2017Q3

REPORT INFORMATION
  Report Type: Spontaneous
  Country: KR (occurrence: KR)
  Receive Date: 20170525
  Receipt Date: 20170824
  Transmission Date: 20171127
  Serious: Yes (Hospitalization, Other)
  Sender: FDA-Public Use
  Company Number: KR-009507513-1610KOR008641

PATIENT
  Age: 60 Year
  Sex: Male
  Weight: 83.4 kg

DRUGS (33)
  1. CISPLAN [Concomitant]
     Active Substance: CISPLATIN
     Dosage: 130 MG, ONCE, CYCLE 4
     Route: 042
     Dates: start: 20160921, end: 20160921
  2. DEXAMETHASONE SODIUM PHOSPHATE. [Concomitant]
     Active Substance: DEXAMETHASONE SODIUM PHOSPHATE
     Dosage: 12 MG, ONCE
     Route: 042
     Dates: start: 20160921, end: 20160921
  3. LUTHIONE [Concomitant]
     Dosage: 1800 MG, ONCE
     Route: 042
     Dates: start: 20160802, end: 20160802
  4. EMEND (FOSAPREPITANT DIMEGLUMINE) [Suspect]
     Active Substance: FOSAPREPITANT DIMEGLUMINE
     Dosage: 150 MG, ONCE
     Route: 042
     Dates: start: 20160802, end: 20160802
  5. LASTET [Concomitant]
     Active Substance: ETOPOSIDE
     Dosage: 193 MG, ONCE DAILY, CYCLE 3
     Route: 042
     Dates: start: 20160823, end: 20160825
  6. LASTET [Concomitant]
     Active Substance: ETOPOSIDE
     Dosage: 186 MG, ONCE DAILY, CYCLE 4
     Route: 042
     Dates: start: 20160921, end: 20160923
  7. DEXAMETHASONE SODIUM PHOSPHATE. [Concomitant]
     Active Substance: DEXAMETHASONE SODIUM PHOSPHATE
     Indication: PROPHYLAXIS OF NAUSEA AND VOMITING
     Dosage: 12 MG, ONCE
     Route: 042
     Dates: start: 20160712, end: 20160712
  8. SANCUSO [Concomitant]
     Active Substance: GRANISETRON
     Indication: PROPHYLAXIS OF NAUSEA AND VOMITING
     Dosage: 1 PATCH (80.2X66.6MM2), ONCE DAILY
     Route: 062
     Dates: start: 20160711, end: 20160717
  9. CURAN [Concomitant]
     Active Substance: RANITIDINE HYDROCHLORIDE
     Dosage: 50 MG, ONCE
     Route: 042
     Dates: start: 20160802, end: 20160802
  10. LASIX [Concomitant]
     Active Substance: FUROSEMIDE
     Dosage: 20 MG, ONCE
     Route: 042
     Dates: start: 20160823, end: 20160823
  11. LASTET [Concomitant]
     Active Substance: ETOPOSIDE
     Dosage: 193 MG, ONCE DAILY, CYCLE 2
     Route: 042
     Dates: start: 20160802, end: 20160804
  12. CISPLAN [Concomitant]
     Active Substance: CISPLATIN
     Indication: SMALL CELL LUNG CANCER
     Dosage: 137 MG, ONCE, CYCLE 1
     Route: 042
     Dates: start: 20160712, end: 20160712
  13. LASIX [Concomitant]
     Active Substance: FUROSEMIDE
     Dosage: 20 MG, ONCE
     Route: 042
     Dates: start: 20160802, end: 20160802
  14. SANCUSO [Concomitant]
     Active Substance: GRANISETRON
     Dosage: 1 PATCH (80.2X66.6MM2), ONCE DAILY
     Route: 062
     Dates: start: 20160822, end: 20160828
  15. CURAN [Concomitant]
     Active Substance: RANITIDINE HYDROCHLORIDE
     Dosage: 50 MG, ONCE
     Route: 042
     Dates: start: 20160823, end: 20160823
  16. LUTHIONE [Concomitant]
     Indication: PROPHYLAXIS
     Dosage: 1800 MG, ONCE
     Dates: start: 20160712, end: 20160712
  17. SODIUM CHLORIDE. [Concomitant]
     Active Substance: SODIUM CHLORIDE
     Dosage: 1000 ML, ONCE DAILY
     Dates: start: 20160711, end: 20160712
  18. EMEND (FOSAPREPITANT DIMEGLUMINE) [Suspect]
     Active Substance: FOSAPREPITANT DIMEGLUMINE
     Dosage: 150 MG, ONCE
     Route: 042
     Dates: start: 20160823, end: 20160823
  19. LASIX [Concomitant]
     Active Substance: FUROSEMIDE
     Indication: PROPHYLAXIS
     Dosage: 20 MG, ONCE
     Route: 042
     Dates: start: 20160712, end: 20160712
  20. LASIX [Concomitant]
     Active Substance: FUROSEMIDE
     Dosage: 20 MG, ONCE
     Route: 042
     Dates: start: 20160921, end: 20160921
  21. LUTHIONE [Concomitant]
     Dosage: 1800 MG, ONCE
     Route: 042
     Dates: start: 20160921, end: 20160921
  22. EMEND (FOSAPREPITANT DIMEGLUMINE) [Suspect]
     Active Substance: FOSAPREPITANT DIMEGLUMINE
     Dosage: 150 MG, ONCE
     Route: 042
     Dates: start: 20160921, end: 20160921
  23. BETADINE [Concomitant]
     Active Substance: POVIDONE-IODINE
     Indication: PROPHYLAXIS
     Dosage: SEVERAL TIMES, AS NEEDED
     Dates: start: 20160712, end: 2016
  24. LASTET [Concomitant]
     Active Substance: ETOPOSIDE
     Indication: SMALL CELL LUNG CANCER
     Dosage: 196 MG, ONCE DAILY, CYCLE 1
     Route: 042
     Dates: start: 20160712, end: 20160714
  25. CISPLAN [Concomitant]
     Active Substance: CISPLATIN
     Dosage: 135 MG, ONCE, CYCLE 2
     Route: 042
     Dates: start: 20160802, end: 20160802
  26. DEXAMETHASONE SODIUM PHOSPHATE. [Concomitant]
     Active Substance: DEXAMETHASONE SODIUM PHOSPHATE
     Dosage: 12 MG, ONCE
     Route: 042
     Dates: start: 20160802, end: 20160802
  27. DEXAMETHASONE SODIUM PHOSPHATE. [Concomitant]
     Active Substance: DEXAMETHASONE SODIUM PHOSPHATE
     Dosage: 12 MG, ONCE
     Route: 042
     Dates: start: 20160823, end: 20160823
  28. SANCUSO [Concomitant]
     Active Substance: GRANISETRON
     Dosage: 1 PATCH (80.2X66.6MM2), ONCE DAILY
     Route: 062
     Dates: start: 20160801, end: 20160807
  29. SANCUSO [Concomitant]
     Active Substance: GRANISETRON
     Dosage: 1 PATCH (80.2X66.6MM2), ONCE DAILY
     Route: 062
     Dates: start: 20160920, end: 20160926
  30. CENTRUM (MINERALS (UNSPECIFIED) (+) VITAMINS (UNSPECIFIED)) [Concomitant]
     Indication: MINERAL SUPPLEMENTATION
     Dosage: 1 TABLET, ONCE DAILY
     Route: 048
     Dates: start: 20160711, end: 20160812
  31. EMEND (FOSAPREPITANT DIMEGLUMINE) [Suspect]
     Active Substance: FOSAPREPITANT DIMEGLUMINE
     Indication: PROPHYLAXIS OF NAUSEA AND VOMITING
     Dosage: 150 MG, ONCE
     Route: 042
     Dates: start: 20160712, end: 20160712
  32. CISPLAN [Concomitant]
     Active Substance: CISPLATIN
     Dosage: 135 MG, ONCE, CYCLE 3
     Route: 042
     Dates: start: 20160823, end: 20160823
  33. CURAN [Concomitant]
     Active Substance: RANITIDINE HYDROCHLORIDE
     Indication: PAIN PROPHYLAXIS
     Dosage: 50 MG, ONCE
     Route: 042
     Dates: start: 20160712, end: 20160712

REACTIONS (21)
  - Nausea [Recovered/Resolved]
  - Cough [Recovered/Resolved]
  - Nausea [Recovered/Resolved]
  - Cough [Recovered/Resolved]
  - Neutropenia [Recovered/Resolved]
  - Radiation oesophagitis [Recovered/Resolved]
  - Gastrooesophageal reflux disease [Recovered/Resolved]
  - Pyrexia [Recovering/Resolving]
  - Vomiting [Recovered/Resolved]
  - Dyspepsia [Recovered/Resolved]
  - Vomiting [Recovered/Resolved]
  - Febrile neutropenia [Recovered/Resolved]
  - Productive cough [Recovered/Resolved]
  - Radiation oesophagitis [Recovered/Resolved]
  - Insomnia [Recovered/Resolved]
  - Nausea [Recovered/Resolved]
  - Nausea [Recovered/Resolved]
  - Neutropenia [Recovered/Resolved]
  - Depression [Recovered/Resolved]
  - Nausea [Recovered/Resolved]
  - Cough [Recovered/Resolved]

NARRATIVE: CASE EVENT DATE: 20160712
